FAERS Safety Report 4591432-X (Version None)
Quarter: 2005Q1

REPORT INFORMATION
  Report Type: 
  Country: None (occurrence: None)
  Receive Date: 20050222
  Receipt Date: 20050203
  Transmission Date: 20050727
  Serious: Yes (Other)
  Sender: FDA-Public Use
  Company Number: 10144

PATIENT
  Age: 67 Year
  Sex: Male

DRUGS (10)
  1. METHOTREXATE [Suspect]
     Indication: LYMPHOMA
     Dosage: 11 G PER CYCLE IV
     Route: 042
     Dates: start: 20041227
  2. LASIX [Concomitant]
  3. DILANTIN [Concomitant]
  4. VALSARTAN [Concomitant]
  5. COUMADIN [Concomitant]
  6. CLONAZEPAM [Concomitant]
  7. LEXAPRO [Concomitant]
  8. PROPAFENONE HYDROCHLORIDE [Concomitant]
  9. TERAZOSIN HCL [Concomitant]
  10. AMARYL [Concomitant]

REACTIONS (2)
  - CONDITION AGGRAVATED [None]
  - NEUROPATHY PERIPHERAL [None]
